FAERS Safety Report 8958585 (Version 2)
Quarter: 2013Q1

REPORT INFORMATION
  Report Type: Spontaneous
  Country: US (occurrence: None)
  Receive Date: 20121203
  Receipt Date: 20121228
  Transmission Date: 20140127
  Serious: Yes (Hospitalization)
  Sender: FDA-Public Use
  Company Number: JPI-P-026424

PATIENT
  Age: 53 Year
  Sex: Male
  Weight: 103.42 kg

DRUGS (30)
  1. XYREM (500 MILLIGRAM/MILLILITERS, SOLUTION) (SODIUM OXYBATE) [Suspect]
     Indication: INSOMNIA
     Route: 048
     Dates: start: 200910
  2. TESTOSTERONE [Concomitant]
  3. CARISOPRODOL [Concomitant]
  4. CLOPIDOGREL BISULFATE [Concomitant]
  5. PRION [Concomitant]
  6. DULOXETINE HYDROCHLORIDE [Concomitant]
  7. HYDROMORPHONE HYDROCHLORIDE [Concomitant]
  8. BUPIVACAINE HYDROCHLORIDE [Concomitant]
  9. FLUTICASONE [Concomitant]
  10. FUROSEMIDE [Concomitant]
  11. INSULIN LISPRO RECOMBINANT [Concomitant]
  12. HYDRALAZINE HYDROCHLORIDE [Concomitant]
  13. ISOSORBIDE [Concomitant]
  14. INSULIN GLARGINE RECOMBINANT [Concomitant]
  15. LISINOPRIL [Concomitant]
  16. LORAZEPAM [Concomitant]
  17. OMEGA-3-ACID ETHYL ESTERS [Concomitant]
  18. PREGABALIN [Concomitant]
  19. METOPROLOL [Concomitant]
  20. MODAFINIL [Concomitant]
  21. NIACIN [Concomitant]
  22. NIFEDIPINE [Concomitant]
  23. NITROGLYCERINE [Concomitant]
  24. PANTOPRAZOLE [Concomitant]
  25. PROMETHAZINE [Concomitant]
  26. RANITIDINE [Concomitant]
  27. SIMVASTATIN [Concomitant]
  28. URSODIOL [Concomitant]
  29. VITAMIN D2 [Concomitant]
  30. ZALEPLON [Concomitant]

REACTIONS (30)
  - Myocardial infarction [None]
  - Sepsis [None]
  - Cardiac failure congestive [None]
  - Respiratory failure [None]
  - Coma [None]
  - Atrial fibrillation [None]
  - Ligament sprain [None]
  - Intervertebral disc degeneration [None]
  - Bursa disorder [None]
  - Carpal tunnel syndrome [None]
  - Radiculitis lumbosacral [None]
  - Dysphonia [None]
  - Myositis [None]
  - Neuritis [None]
  - Radiculitis [None]
  - Abdominal pain [None]
  - Back pain [None]
  - Myalgia [None]
  - Sleep disorder [None]
  - Chest pain [None]
  - Pain [None]
  - Urinary tract infection [None]
  - Diarrhoea [None]
  - Arthritis [None]
  - Contusion [None]
  - Fall [None]
  - Limb injury [None]
  - Fatigue [None]
  - Sinusitis [None]
  - Ligament sprain [None]
